FAERS Safety Report 6667667-9 (Version None)
Quarter: 2010Q2

REPORT INFORMATION
  Report Type: 
  Country: None (occurrence: None)
  Receive Date: 20100405
  Receipt Date: 20100401
  Transmission Date: 20101027
  Serious: Yes (Hospitalization)
  Sender: FDA-Public Use
  Company Number: D0067008A

PATIENT
  Age: 61 Year
  Sex: Female

DRUGS (4)
  1. REQUIP [Suspect]
     Route: 048
  2. NACOM [Suspect]
     Route: 048
  3. HERBAL MEDICATION [Concomitant]
     Route: 065
  4. VITAMIN CA-MG [Concomitant]
     Route: 065

REACTIONS (4)
  - CERVICAL POLYP [None]
  - GALACTORRHOEA [None]
  - OESTROGENIC EFFECT [None]
  - VAGINAL DISORDER [None]
